FAERS Safety Report 20625225 (Version 5)
Quarter: 2022Q2

REPORT INFORMATION
  Report Type: Report from Study
  Country: AU (occurrence: AU)
  Receive Date: 20220323
  Receipt Date: 20220504
  Transmission Date: 20220721
  Serious: Yes (Death, Life-Threatening, Hospitalization, Other)
  Sender: FDA-Public Use
  Company Number: AU-BRISTOL-MYERS SQUIBB COMPANY-BMS-2022-038937

PATIENT
  Age: 67 Year
  Sex: Male
  Weight: 84.8 kg

DRUGS (10)
  1. NIVOLUMAB [Suspect]
     Active Substance: NIVOLUMAB
     Indication: Gastrooesophageal cancer
     Dosage: 240 MILLIGRAM
     Route: 042
     Dates: end: 20220303
  2. REGORAFENIB [Suspect]
     Active Substance: REGORAFENIB
     Indication: Gastrooesophageal cancer
     Dosage: 90 MILLIGRAM
     Route: 048
     Dates: start: 20220203, end: 20220309
  3. AMPICILLIN [Concomitant]
     Active Substance: AMPICILLIN
     Indication: Prophylaxis
     Route: 042
     Dates: start: 20220310, end: 20220311
  4. ACETAMINOPHEN [Concomitant]
     Active Substance: ACETAMINOPHEN
     Indication: Pyrexia
     Route: 048
     Dates: start: 20220310, end: 20220310
  5. GENTAMICIN [Concomitant]
     Active Substance: GENTAMICIN
     Indication: Prophylaxis
     Route: 042
     Dates: start: 20220310, end: 20220310
  6. POTASSIUM PHOSPHATE, MONOBASIC [Concomitant]
     Active Substance: POTASSIUM PHOSPHATE, MONOBASIC
     Indication: Adverse reaction
     Route: 042
     Dates: start: 20220310
  7. ENOXAPARIN [Concomitant]
     Active Substance: ENOXAPARIN
     Indication: Prophylaxis
     Route: 058
     Dates: start: 20220310
  8. METRONIDAZOLE [Concomitant]
     Active Substance: METRONIDAZOLE
     Indication: Prophylaxis
     Route: 042
     Dates: start: 20220311
  9. SODIUM PHOSPHATE [Concomitant]
     Active Substance: SODIUM PHOSPHATE
     Indication: Adverse reaction
     Route: 048
     Dates: start: 20220311
  10. XYLOCAINE [Concomitant]
     Active Substance: LIDOCAINE HYDROCHLORIDE
     Indication: Product used for unknown indication
     Dosage: XYLOCAINE ORAL LIQUID 1 PERCENT- ONCE ONLY
     Route: 048
     Dates: start: 20220310, end: 20220310

REACTIONS (4)
  - Hepatic failure [Fatal]
  - Jaundice [Unknown]
  - Hypophosphataemia [Recovered/Resolved]
  - Pleuritic pain [Unknown]

NARRATIVE: CASE EVENT DATE: 20220308
